FAERS Safety Report 9533036 (Version 1)
Quarter: 2013Q3

REPORT INFORMATION
  Report Type: Spontaneous
  Country: US (occurrence: None)
  Receive Date: 20130916
  Receipt Date: 20130916
  Transmission Date: 20140515
  Serious: Yes (Other)
  Sender: FDA-Public Use
  Company Number: A1040762A

PATIENT
  Age: 64 Year
  Sex: Female

DRUGS (3)
  1. SODIUM FLUORIDE [Suspect]
  2. ORAL MOISTURISERS MOUTHWASH [Suspect]
  3. UNKNOWN (FORMULATION UNKNOWN) (UNKNOWN) [Suspect]

REACTIONS (2)
  - Lip and/or oral cavity cancer [None]
  - Tongue discolouration [None]
